FAERS Safety Report 8607891 (Version 2)
Quarter: 2013Q3

REPORT INFORMATION
  Report Type: Spontaneous
  Country: US (occurrence: US)
  Receive Date: 20120611
  Receipt Date: 20130708
  Transmission Date: 20140515
  Serious: No
  Sender: FDA-Public Use
  Company Number: US-ASTRAZENECA-2012SE35329

PATIENT
  Age: 55 Year
  Sex: Female
  Weight: 88.5 kg

DRUGS (18)
  1. NEXIUM [Suspect]
     Indication: GASTROOESOPHAGEAL REFLUX DISEASE
     Route: 048
     Dates: start: 20070804, end: 2011
  2. VIVELLE DOT [Concomitant]
     Indication: HORMONE REPLACEMENT THERAPY
  3. LEVOTHROID [Concomitant]
     Dates: start: 20110103
  4. AMLODIPINE BESYLATE [Concomitant]
     Dates: start: 20111001
  5. GABAPENTIN [Concomitant]
     Dates: start: 20111003
  6. TRIAMCINOLONE [Concomitant]
     Dosage: 0.1 PERCENT
  7. PREDNISOLONE AC [Concomitant]
     Dosage: 1 PERCENT
     Route: 047
     Dates: start: 20111115
  8. CLOBETASOL PROP [Concomitant]
     Dosage: 0.05 PERCENT, 45MG
     Dates: start: 20111121
  9. TRAMADOL [Concomitant]
     Dates: start: 20111128
  10. LEXAPRO [Concomitant]
     Dates: start: 20111206
  11. SINGULAIR [Concomitant]
     Dates: start: 20111206
  12. ATELVIA [Concomitant]
     Dates: start: 20120206
  13. LORATADINE [Concomitant]
     Dates: start: 20120301
  14. ESCITALOPRAM [Concomitant]
     Dates: start: 20120326
  15. ATORVASTATIN [Concomitant]
     Dates: start: 20121015
  16. HYDROXYCHLOROQUINE [Concomitant]
     Dates: start: 20121024
  17. FUROSEMIDE [Concomitant]
     Dates: start: 20130206
  18. DEXILANT [Concomitant]
     Dates: start: 20130206

REACTIONS (10)
  - Osteoporosis [Unknown]
  - Bone density decreased [Unknown]
  - Lupus-like syndrome [Unknown]
  - Multiple fractures [Unknown]
  - Cataract [Unknown]
  - Rheumatoid arthritis [Unknown]
  - Hyperthyroidism [Unknown]
  - Vitamin D deficiency [Unknown]
  - Limb deformity [Unknown]
  - Depression [Unknown]
